FAERS Safety Report 8308731-8 (Version None)
Quarter: 2012Q2

REPORT INFORMATION
  Report Type: 
  Country: None (occurrence: None)
  Receive Date: 20120424
  Receipt Date: 20120416
  Transmission Date: 20120825
  Serious: Yes (Hospitalization, Other)
  Sender: FDA-Public Use
  Company Number: US-ABBOTT-12P-163-0926200-00

PATIENT
  Sex: Female
  Weight: 90.8 kg

DRUGS (8)
  1. HUMIRA [Suspect]
     Dates: start: 20100301
  2. SLOW FE [Concomitant]
     Indication: PRODUCT USED FOR UNKNOWN INDICATION
  3. HUMIRA [Suspect]
     Indication: CROHN'S DISEASE
     Dates: start: 20090101, end: 20100101
  4. LEVOTHYROXINE SODIUM [Concomitant]
     Indication: THYROID DISORDER
  5. ZYRTEC [Concomitant]
     Indication: SEASONAL ALLERGY
  6. MULTI-VITAMIN [Concomitant]
     Indication: PRODUCT USED FOR UNKNOWN INDICATION
  7. PRILOSEC [Concomitant]
     Indication: GASTROOESOPHAGEAL REFLUX DISEASE
  8. MERCAPTOPURINE [Suspect]
     Indication: PRODUCT USED FOR UNKNOWN INDICATION

REACTIONS (14)
  - BACK PAIN [None]
  - PYREXIA [None]
  - HYPERTENSION [None]
  - HYPOAESTHESIA [None]
  - PANCREATITIS [None]
  - DIARRHOEA [None]
  - PANCREAS INFECTION [None]
  - GASTROINTESTINAL BACTERIAL INFECTION [None]
  - INJECTION SITE PAIN [None]
  - SENSORY DISTURBANCE [None]
  - PAIN IN EXTREMITY [None]
  - TENDERNESS [None]
  - ABDOMINAL DISTENSION [None]
  - PARAESTHESIA [None]
